FAERS Safety Report 23090384 (Version 1)
Quarter: 2023Q4

REPORT INFORMATION
  Report Type: Spontaneous
  Country: FR (occurrence: FR)
  Receive Date: 20231020
  Receipt Date: 20231020
  Transmission Date: 20240110
  Serious: Yes (Hospitalization, Other)
  Sender: FDA-Public Use
  Company Number: None

PATIENT
  Age: 49 Year
  Sex: Female
  Weight: 68 kg

DRUGS (9)
  1. EMEND [Interacting]
     Active Substance: APREPITANT
     Indication: Vomiting
     Dosage: 205MG ONE DAY AND 120MG THE NEXT
     Route: 048
     Dates: start: 20230825, end: 20230923
  2. CABOMETYX [Interacting]
     Active Substance: CABOZANTINIB S-MALATE
     Indication: Renal cancer
     Dosage: 1X/D
     Route: 048
     Dates: start: 20230613
  3. EUPANTOL [Concomitant]
     Active Substance: PANTOPRAZOLE SODIUM
  4. RAMIPRIL [Concomitant]
     Active Substance: RAMIPRIL
  5. INNOHEP [Concomitant]
     Active Substance: TINZAPARIN SODIUM
  6. SKENAN [Concomitant]
     Active Substance: MORPHINE SULFATE
  7. LEVOTHYROXINE [Concomitant]
     Active Substance: LEVOTHYROXINE
  8. CYMBALTA [Concomitant]
     Active Substance: DULOXETINE HYDROCHLORIDE
  9. MORPHINE SULFATE [Concomitant]
     Active Substance: MORPHINE SULFATE
     Dosage: UNK

REACTIONS (2)
  - Seizure [Recovered/Resolved]
  - Product prescribing error [Recovered/Resolved]

NARRATIVE: CASE EVENT DATE: 20230825
